FAERS Safety Report 19029104 (Version 1)
Quarter: 2021Q1

REPORT INFORMATION
  Report Type: Spontaneous
  Country: CA (occurrence: CA)
  Receive Date: 20210318
  Receipt Date: 20210318
  Transmission Date: 20210420
  Serious: Yes (Life-Threatening, Disabling, Other)
  Sender: FDA-Public Use
  Company Number: CA-PFIZER INC-2021282569

PATIENT
  Age: 9 Year
  Sex: Male
  Weight: 45 kg

DRUGS (68)
  1. IDARUBICIN HCL [Suspect]
     Active Substance: IDARUBICIN HYDROCHLORIDE
     Indication: ACUTE MYELOID LEUKAEMIA
     Dosage: 6 MG
     Route: 042
  2. CICLOSPORIN [Concomitant]
     Active Substance: CYCLOSPORINE
  3. DIAZEPAM. [Concomitant]
     Active Substance: DIAZEPAM
  4. HEPARIN SODIUM. [Concomitant]
     Active Substance: HEPARIN SODIUM
  5. HYDROXYZINE [Concomitant]
     Active Substance: HYDROXYZINE HYDROCHLORIDE
  6. METOCLOPRAMIDE. [Concomitant]
     Active Substance: METOCLOPRAMIDE
  7. MORPHINE [Concomitant]
     Active Substance: MORPHINE
  8. NALOXONE [Concomitant]
     Active Substance: NALOXONE
  9. PYRIDOXINE [Concomitant]
     Active Substance: PYRIDOXINE
  10. FLUDARABINE PHOSPHATE. [Suspect]
     Active Substance: FLUDARABINE PHOSPHATE
     Indication: ACUTE MYELOID LEUKAEMIA
     Dosage: 15 MG
     Route: 042
  11. INTRON A [Suspect]
     Active Substance: INTERFERON ALFA-2B
     Indication: ACUTE MYELOID LEUKAEMIA
     Dosage: 1 MIU, 1X/DAY
     Route: 058
  12. MITOXANTRONE [Suspect]
     Active Substance: MITOXANTRONE HYDROCHLORIDE
     Indication: ACUTE MYELOID LEUKAEMIA
     Dosage: 4.6 MG
     Route: 042
  13. CEFOTAXIME [Concomitant]
     Active Substance: CEFOTAXIME SODIUM
  14. CLOBAZAM. [Concomitant]
     Active Substance: CLOBAZAM
  15. DEFIBROTIDE [Concomitant]
     Active Substance: DEFIBROTIDE (BOVINE)
  16. DIMENHYDRINATE. [Concomitant]
     Active Substance: DIMENHYDRINATE
  17. DOCUSATE SODIUM. [Concomitant]
     Active Substance: DOCUSATE SODIUM
  18. GRANISETRON [Concomitant]
     Active Substance: GRANISETRON
  19. MEPERIDINE [Concomitant]
     Active Substance: MEPERIDINE
  20. METRONIDAZOLE. [Concomitant]
     Active Substance: METRONIDAZOLE
  21. FENTANYL. [Concomitant]
     Active Substance: FENTANYL
  22. FILGRASTIM [Concomitant]
     Active Substance: FILGRASTIM
  23. LEUCOVORIN [CALCIUM FOLINATE] [Concomitant]
     Active Substance: LEUCOVORIN
  24. POTASSIUM [Concomitant]
     Active Substance: POTASSIUM
  25. PROTAMINE SULFATE. [Concomitant]
     Active Substance: PROTAMINE SULFATE
  26. URSODEOXYCHOLIC ACID [Concomitant]
     Active Substance: URSODIOL
  27. VANCOMYCIN [Concomitant]
     Active Substance: VANCOMYCIN
  28. CYTARABINE. [Suspect]
     Active Substance: CYTARABINE
     Indication: ACUTE MYELOID LEUKAEMIA
     Dosage: 1000 MG
     Route: 042
  29. ALLOPURINOL. [Concomitant]
     Active Substance: ALLOPURINOL
  30. CEFTRIAXONE. [Concomitant]
     Active Substance: CEFTRIAXONE
  31. FUROSEMIDE. [Concomitant]
     Active Substance: FUROSEMIDE
  32. MEROPENEM. [Concomitant]
     Active Substance: MEROPENEM
  33. PHYTONADIONE. [Concomitant]
     Active Substance: PHYTONADIONE
  34. SYNAGIS [Concomitant]
     Active Substance: PALIVIZUMAB
  35. BUSULFAN. [Suspect]
     Active Substance: BUSULFAN
     Indication: ACUTE MYELOID LEUKAEMIA
     Dosage: 11 MG, 4X/DAY
     Route: 042
  36. INTERLEUKIN?2 [Suspect]
     Active Substance: ALDESLEUKIN
     Indication: ACUTE MYELOID LEUKAEMIA
     Dosage: 2.25 MIU
     Route: 042
  37. INTERLEUKIN?2 [Suspect]
     Active Substance: ALDESLEUKIN
     Dosage: 1.26 MIU, 2X/DAY
     Route: 058
  38. ACETAMINOPHEN. [Concomitant]
     Active Substance: ACETAMINOPHEN
  39. DEXAMETHASONE. [Concomitant]
     Active Substance: DEXAMETHASONE
  40. LEVETIRACETAM. [Concomitant]
     Active Substance: LEVETIRACETAM
     Route: 065
  41. METHYLPREDNISOLONE. [Concomitant]
     Active Substance: METHYLPREDNISOLONE
  42. NYSTATIN. [Concomitant]
     Active Substance: NYSTATIN
  43. PANTOPRAZOLE [Concomitant]
     Active Substance: PANTOPRAZOLE
  44. SODIUM [Concomitant]
     Active Substance: SODIUM
  45. DAUNORUBICIN HYDROCHLORIDE. [Suspect]
     Active Substance: DAUNORUBICIN HYDROCHLORIDE
     Indication: ACUTE MYELOID LEUKAEMIA
     Dosage: 18 MG
     Route: 042
  46. ACYCLOVIR [ACICLOVIR] [Concomitant]
     Active Substance: ACYCLOVIR
  47. AMOXICILLIN. [Concomitant]
     Active Substance: AMOXICILLIN
  48. ATROPINE. [Concomitant]
     Active Substance: ATROPINE
  49. FAMOTIDINE. [Concomitant]
     Active Substance: FAMOTIDINE
  50. FLUCONAZOLE. [Concomitant]
     Active Substance: FLUCONAZOLE
  51. LORAZEPAM. [Concomitant]
     Active Substance: LORAZEPAM
  52. MESNA. [Concomitant]
     Active Substance: MESNA
  53. METHOTREXATE SODIUM. [Suspect]
     Active Substance: METHOTREXATE SODIUM
     Indication: ACUTE MYELOID LEUKAEMIA
     Dosage: 7.5 MG
     Route: 040
  54. ETOPOSIDE. [Suspect]
     Active Substance: ETOPOSIDE
     Indication: ACUTE MYELOID LEUKAEMIA
     Dosage: 60 MG
     Route: 042
  55. CASPOFUNGIN [Concomitant]
     Active Substance: CASPOFUNGIN
  56. MIDAZOLAM. [Concomitant]
     Active Substance: MIDAZOLAM
  57. ONDANSETRON [Concomitant]
     Active Substance: ONDANSETRON
  58. PENTAMIDINE ISETHIONATE. [Concomitant]
     Active Substance: PENTAMIDINE ISETHIONATE
  59. PIPERACILLIN/TAZOBACTAM [Concomitant]
     Active Substance: PIPERACILLIN SODIUM\TAZOBACTAM SODIUM
  60. PROPOFOL. [Concomitant]
     Active Substance: PROPOFOL
     Route: 065
  61. RANITIDINE. [Concomitant]
     Active Substance: RANITIDINE
  62. TICARCILLIN DISODIUM AND POTASSIUM CLAVULANATE [Concomitant]
  63. TOBRAMYCIN. [Concomitant]
     Active Substance: TOBRAMYCIN
  64. CYCLOPHOSPHAMIDE. [Suspect]
     Active Substance: CYCLOPHOSPHAMIDE
     Indication: ACUTE MYELOID LEUKAEMIA
     Dosage: 550 MG
     Route: 042
  65. ALTEPLASE. [Concomitant]
     Active Substance: ALTEPLASE
  66. AMBISOME [Concomitant]
     Active Substance: AMPHOTERICIN B
  67. HYDROCORTISONE. [Concomitant]
     Active Substance: HYDROCORTISONE
  68. NIFEDIPINE. [Concomitant]
     Active Substance: NIFEDIPINE

REACTIONS (2)
  - Pulmonary hypertension [Unknown]
  - Restrictive cardiomyopathy [Unknown]
